FAERS Safety Report 17451538 (Version 1)
Quarter: 2020Q1

REPORT INFORMATION
  Report Type: Spontaneous
  Country: US (occurrence: US)
  Receive Date: 20200224
  Receipt Date: 20200224
  Transmission Date: 20200409
  Serious: No
  Sender: FDA-Public Use
  Company Number: US-PFIZER INC-2020080142

PATIENT
  Age: 47 Year
  Sex: Female

DRUGS (11)
  1. LYRICA [Suspect]
     Active Substance: PREGABALIN
     Dosage: UNK
  2. NEURONTIN [Suspect]
     Active Substance: GABAPENTIN
     Dosage: UNK
  3. BIOFREEZE [Suspect]
     Active Substance: MENTHOL
     Dosage: UNK
  4. CYMBALTA [Suspect]
     Active Substance: DULOXETINE HYDROCHLORIDE
     Dosage: UNK
  5. ARNICARE [Suspect]
     Active Substance: HOMEOPATHICS
     Dosage: UNK
  6. PENETREX [Suspect]
     Active Substance: ENOXACIN
     Dosage: UNK
  7. SAVELLA [Suspect]
     Active Substance: MILNACIPRAN HYDROCHLORIDE
     Dosage: UNK
  8. CAPSAICIN. [Suspect]
     Active Substance: CAPSAICIN
     Dosage: UNK
  9. BENGAY PAIN RELIEVING (MENTHOL) [Suspect]
     Active Substance: MENTHOL
     Dosage: UNK
  10. ASPERCREME [LIDOCAINE] [Suspect]
     Active Substance: LIDOCAINE
     Dosage: UNK
  11. MAXIMUM STRENGTH BLUE EMU PAIN RELIEF BLU EMU [Suspect]
     Active Substance: TROLAMINE SALICYLATE
     Dosage: UNK

REACTIONS (1)
  - Drug hypersensitivity [Unknown]
